FAERS Safety Report 24343112 (Version 1)
Quarter: 2024Q3

REPORT INFORMATION
  Report Type: Spontaneous
  Country: AR (occurrence: AR)
  Receive Date: 20240920
  Receipt Date: 20240920
  Transmission Date: 20241017
  Serious: Yes (Other)
  Sender: SANDOZ
  Company Number: AR-002147023-NVSC2021AR049306

PATIENT
  Age: 11 Year
  Sex: Male
  Weight: 34 kg

DRUGS (3)
  1. OMNITROPE [Suspect]
     Active Substance: SOMATROPIN
     Indication: Growth hormone deficiency
     Dosage: 0.5 MG, QD
     Route: 058
     Dates: start: 20161201
  2. OMNITROPE [Suspect]
     Active Substance: SOMATROPIN
     Dosage: 0.65, FREQUENCY (6/7)
     Route: 058
     Dates: start: 20151212
  3. OMNITROPE [Suspect]
     Active Substance: SOMATROPIN
     Indication: Growth retardation
     Dosage: 0.7 MG, QD
     Route: 058

REACTIONS (22)
  - Nervousness [Unknown]
  - Hunger [Unknown]
  - Anxiety [Unknown]
  - Product dose omission issue [Unknown]
  - Feeding disorder [Unknown]
  - Somnolence [Unknown]
  - Blood glucose increased [Unknown]
  - Pain [Unknown]
  - Illness [Unknown]
  - Nasopharyngitis [Unknown]
  - Dengue fever [Unknown]
  - Psychomotor hyperactivity [Unknown]
  - Sleep disorder [Unknown]
  - Influenza [Unknown]
  - Pain in extremity [Unknown]
  - Psoriasis [Unknown]
  - Arthralgia [Unknown]
  - Expired device used [Unknown]
  - Drug dose omission by device [Unknown]
  - Product communication issue [Unknown]
  - Treatment noncompliance [Unknown]
  - Product distribution issue [Unknown]

NARRATIVE: CASE EVENT DATE: 20221201
